FAERS Safety Report 25062894 (Version 6)
Quarter: 2025Q2

REPORT INFORMATION
  Report Type: Spontaneous
  Country: US (occurrence: US)
  Receive Date: 20250311
  Receipt Date: 20250622
  Transmission Date: 20250717
  Serious: No
  Sender: KARYOPHARM THERAPEUTICS
  Company Number: US-KARYOPHARM-2025KPT000240

PATIENT

DRUGS (20)
  1. XPOVIO [Suspect]
     Active Substance: SELINEXOR
     Indication: Plasma cell myeloma
     Route: 048
     Dates: start: 20250302, end: 2025
  2. XPOVIO [Suspect]
     Active Substance: SELINEXOR
     Route: 048
     Dates: start: 2025, end: 2025
  3. LIPITOR [Concomitant]
     Active Substance: ATORVASTATIN CALCIUM
  4. NORVASC [Concomitant]
     Active Substance: AMLODIPINE BESYLATE
  5. TRAMADOL [Concomitant]
     Active Substance: TRAMADOL
  6. MEDROL [Concomitant]
     Active Substance: METHYLPREDNISOLONE
  7. MORPHINE [Concomitant]
     Active Substance: MORPHINE
  8. LORAZEPAM [Concomitant]
     Active Substance: LORAZEPAM
  9. LEVSIN [Concomitant]
     Active Substance: HYOSCYAMINE SULFATE
  10. OXYCODONE [Concomitant]
     Active Substance: OXYCODONE
  11. LEVOTHYROXINE [Concomitant]
     Active Substance: LEVOTHYROXINE
  12. VOQUEZNA DUAL PAK [Concomitant]
     Active Substance: AMOXICILLIN\VONOPRAZAN FUMARATE
  13. VALTREX [Concomitant]
     Active Substance: VALACYCLOVIR HYDROCHLORIDE
  14. ZOLOFT [Concomitant]
     Active Substance: SERTRALINE HYDROCHLORIDE
  15. PREVIDENT [Concomitant]
     Active Substance: SODIUM FLUORIDE
  16. DEXAMETHASONE [Concomitant]
     Active Substance: DEXAMETHASONE
  17. XGEVA [Concomitant]
     Active Substance: DENOSUMAB
  18. TRULANCE [Concomitant]
     Active Substance: PLECANATIDE
  19. TRESANIL [ALPRAZOLAM] [Concomitant]
  20. PROCHLORPERAZINE [Concomitant]
     Active Substance: PROCHLORPERAZINE

REACTIONS (5)
  - Dyspepsia [Recovering/Resolving]
  - Nausea [Recovering/Resolving]
  - Diarrhoea [Recovered/Resolved]
  - Constipation [Unknown]
  - Drug ineffective [Unknown]

NARRATIVE: CASE EVENT DATE: 20250101
